FAERS Safety Report 6994086-8 (Version None)
Quarter: 2010Q3

REPORT INFORMATION
  Report Type: 
  Country: None (occurrence: None)
  Receive Date: 20100917
  Receipt Date: 20070430
  Transmission Date: 20110219
  Serious: Yes (Other)
  Sender: FDA-Public Use
  Company Number: US-ASTRAZENECA-2006UW23769

PATIENT
  Age: 17564 Day
  Sex: Female
  Weight: 147.4 kg

DRUGS (22)
  1. SEROQUEL [Suspect]
     Indication: DEPRESSION
     Dosage: 25 MG TO 100 MG
     Route: 048
     Dates: start: 20040204
  2. SEROQUEL [Suspect]
     Indication: SLEEP DISORDER
     Dosage: 25 MG TO 100 MG
     Route: 048
     Dates: start: 20040204
  3. SEROQUEL [Suspect]
     Indication: ANXIETY
     Dosage: 25 MG TO 100 MG
     Route: 048
     Dates: start: 20040204
  4. SEROQUEL [Suspect]
     Indication: HALLUCINATION
     Dosage: 25 MG TO 100 MG
     Route: 048
     Dates: start: 20040204
  5. SEROQUEL [Suspect]
     Indication: INSOMNIA
     Dosage: 25 MG TO 100 MG
     Route: 048
     Dates: start: 20040204
  6. ZYPREXA [Suspect]
     Indication: SCHIZOAFFECTIVE DISORDER
     Dosage: 7.5 MG TO 15 MG
     Dates: start: 19970101
  7. ABILIFY [Concomitant]
     Indication: AFFECTIVE DISORDER
     Dosage: 10 MG-20 MG
     Route: 048
     Dates: start: 20041227
  8. ABILIFY [Concomitant]
     Indication: PSYCHOTIC DISORDER
     Dosage: 10 MG-20 MG
     Route: 048
     Dates: start: 20041227
  9. GEODON [Concomitant]
     Route: 048
     Dates: start: 20041001
  10. RISPERDAL [Concomitant]
     Dosage: 3 MG DISPENSED
     Dates: start: 19950125
  11. LORAZEPAM [Concomitant]
     Indication: INSOMNIA
     Dosage: 0.5 MG TO 1 MG
     Route: 048
     Dates: start: 20031111
  12. ASPIRIN [Concomitant]
     Indication: ANTICOAGULANT THERAPY
     Route: 048
     Dates: start: 20040923
  13. FERROUS SULFATE [Concomitant]
     Indication: IRON DEFICIENCY ANAEMIA
     Dosage: 325 MG TO 650 MG
     Route: 048
     Dates: start: 20031111
  14. MAXZIDE [Concomitant]
     Indication: HYPERTENSION
     Dosage: 25 MG, 37.5 MG/25 MG, 50 MG/25 MG
     Route: 048
     Dates: start: 19990409
  15. CYMBALTA [Concomitant]
     Indication: DEPRESSION
     Route: 048
     Dates: start: 20060613
  16. ATENOLOL [Concomitant]
     Dosage: 25 MG TO 50 MG
     Dates: start: 19980725
  17. GLYBURIDE [Concomitant]
     Dosage: 2.5 MG TO 10 MG
     Route: 048
     Dates: start: 19980526
  18. GLUCOPHAGE [Concomitant]
     Dosage: 1000 MG TO 2000 MG
     Route: 048
     Dates: start: 20000829
  19. CITALOPRAM HYDROBROMIDE [Concomitant]
     Indication: DEPRESSION
     Route: 048
     Dates: start: 20061130
  20. CITALOPRAM HYDROBROMIDE [Concomitant]
     Indication: ANXIETY
     Route: 048
     Dates: start: 20061130
  21. AVANDIA [Concomitant]
     Dosage: 2.5 MG TO 4 MG
     Route: 048
     Dates: start: 20020110
  22. COUMADIN [Concomitant]
     Dosage: 1 MG TO 3 MG
     Route: 048
     Dates: start: 20030530

REACTIONS (3)
  - DIABETES MELLITUS [None]
  - DIABETES MELLITUS INADEQUATE CONTROL [None]
  - TYPE 2 DIABETES MELLITUS [None]
